FAERS Safety Report 4819139-1 (Version None)
Quarter: 2005Q4

REPORT INFORMATION
  Report Type: 
  Country: None (occurrence: None)
  Receive Date: 20051012
  Receipt Date: 20050810
  Transmission Date: 20060501
  Serious: No
  Sender: FDA-Public Use
  Company Number: A03200502520

PATIENT
  Sex: Male

DRUGS (1)
  1. UROXATRAL - ALFUSZOSIN HYDROCHLORIDE - TABLET PR - 10 MG [Suspect]
     Dosage: ORAL
     Route: 048
     Dates: start: 20050805

REACTIONS (1)
  - DIARRHOEA [None]
